FAERS Safety Report 24416342 (Version 1)
Quarter: 2024Q4

REPORT INFORMATION
  Report Type: Spontaneous
  Country: US (occurrence: US)
  Receive Date: 20241009
  Receipt Date: 20241009
  Transmission Date: 20250114
  Serious: Yes (Other)
  Sender: PFIZER
  Company Number: US-PFIZER INC-PV202400130492

PATIENT
  Age: 71 Year
  Sex: Female
  Weight: 98.05 kg

DRUGS (1)
  1. BOSULIF [Suspect]
     Active Substance: BOSUTINIB MONOHYDRATE
     Indication: Myeloid leukaemia in remission
     Dosage: 400 MG ORALLY ONCE DAILY
     Route: 048

REACTIONS (2)
  - Hepatic cirrhosis [Unknown]
  - Liver function test abnormal [Unknown]
